FAERS Safety Report 10033577 (Version 1)
Quarter: 2014Q1

REPORT INFORMATION
  Report Type: Spontaneous
  Country: US (occurrence: US)
  Receive Date: 20140325
  Receipt Date: 20140325
  Transmission Date: 20141002
  Serious: No
  Sender: FDA-Public Use
  Company Number: US-BIOGENIDEC-2014BI027327

PATIENT
  Age: 37 Year
  Sex: Male

DRUGS (2)
  1. AVONEX [Suspect]
     Indication: MULTIPLE SCLEROSIS
     Route: 030
  2. GILENYA [Concomitant]

REACTIONS (3)
  - Dysgraphia [Not Recovered/Not Resolved]
  - Incontinence [Recovered/Resolved]
  - Pain [Recovered/Resolved]
